FAERS Safety Report 9536895 (Version 2)
Quarter: 2013Q4

REPORT INFORMATION
  Report Type: Spontaneous
  Country: US (occurrence: US)
  Receive Date: 20130919
  Receipt Date: 20131007
  Transmission Date: 20140711
  Serious: Yes (Other)
  Sender: FDA-Public Use
  Company Number: US-BAYER-2013-113051

PATIENT
  Age: 35 Year
  Sex: Female
  Weight: 71 kg

DRUGS (1)
  1. MIRENA [Suspect]
     Indication: CONTRACEPTION
     Dosage: 20 MCG/24HR, CONT
     Route: 015
     Dates: start: 20121017

REACTIONS (3)
  - Embedded device [Not Recovered/Not Resolved]
  - Post procedural haemorrhage [None]
  - Device dislocation [Not Recovered/Not Resolved]
